FAERS Safety Report 5666994-1 (Version None)
Quarter: 2008Q1

REPORT INFORMATION
  Report Type: 
  Country: None (occurrence: None)
  Receive Date: 20080315
  Receipt Date: 20080107
  Transmission Date: 20080703
  Serious: No
  Sender: FDA-Public Use
  Company Number: US-ABBOTT-08P-163-0432812-00

PATIENT
  Sex: Female
  Weight: 77.18 kg

DRUGS (7)
  1. HUMIRA [Suspect]
     Indication: PSORIATIC ARTHROPATHY
     Route: 058
     Dates: start: 20071201
  2. BENICAR HCT [Concomitant]
     Indication: HYPERTENSION
     Route: 048
  3. INEGY [Concomitant]
     Indication: BLOOD CHOLESTEROL INCREASED
     Route: 048
  4. HYDROCODONE BITARTRATE [Concomitant]
     Indication: PAIN
     Route: 048
  5. GABAPENTIN [Concomitant]
     Indication: CONVULSION PROPHYLAXIS
     Route: 048
  6. TRAMADOL HCL [Concomitant]
     Indication: ANALGESIC THERAPY
     Route: 048
  7. SIBUTRAMINE HYDROCHLORIDE [Concomitant]
     Indication: OBESITY
     Route: 048

REACTIONS (1)
  - HYPERHIDROSIS [None]
